FAERS Safety Report 4630985-X (Version None)
Quarter: 2005Q2

REPORT INFORMATION
  Report Type: 
  Country: None (occurrence: None)
  Receive Date: 20050406
  Receipt Date: 20050406
  Transmission Date: 20051028
  Serious: Yes (Hospitalization)
  Sender: FDA-Public Use
  Company Number: None

PATIENT
  Sex: Female
  Weight: 65.4 kg

DRUGS (4)
  1. MINOCYCLINE 75 MG [Suspect]
     Indication: ACNE
     Dosage: 75 MG  QHS ORAL
     Route: 048
     Dates: start: 20040501, end: 20040821
  2. PROZAC [Concomitant]
  3. ECHINACEA [Concomitant]
  4. THERAGRAN MVI [Concomitant]

REACTIONS (8)
  - BENIGN INTRACRANIAL HYPERTENSION [None]
  - DIPLOPIA [None]
  - HEADACHE [None]
  - NAUSEA [None]
  - PAPILLOEDEMA [None]
  - PHONOPHOBIA [None]
  - PHOTOPHOBIA [None]
  - SCOTOMA [None]
